FAERS Safety Report 13708041 (Version 1)
Quarter: 2017Q2

REPORT INFORMATION
  Report Type: Spontaneous
  Country: US (occurrence: US)
  Receive Date: 20170630
  Receipt Date: 20170630
  Transmission Date: 20170830
  Serious: No
  Sender: FDA-Public Use
  Company Number: US-PRINSTON PHARMACEUTICAL INC.-2017PRN00131

PATIENT
  Sex: Male

DRUGS (1)
  1. VALSARTAN. [Suspect]
     Active Substance: VALSARTAN
     Dosage: UNK
     Dates: start: 201610

REACTIONS (2)
  - Blood pressure increased [Recovered/Resolved]
  - Product substitution issue [Recovered/Resolved]
